FAERS Safety Report 8549784-1 (Version None)
Quarter: 2012Q2

REPORT INFORMATION
  Report Type: 
  Country: None (occurrence: None)
  Receive Date: 20120416
  Receipt Date: 20090930
  Transmission Date: 20120825
  Serious: No
  Sender: FDA-Public Use
  Company Number: PHEH2007US11111

PATIENT
  Age: 69 Year
  Sex: Female

DRUGS (3)
  1. NORVASC [Suspect]
  2. AMLODIPINE BESYLATE [Suspect]
  3. DIOVAN [Suspect]
     Indication: HYPERTENSION
     Dosage: 160 MG, QD, ORAL
     Route: 048

REACTIONS (6)
  - BURNING SENSATION [None]
  - PAIN IN EXTREMITY [None]
  - SNEEZING [None]
  - GAIT DISTURBANCE [None]
  - BLOOD PRESSURE INADEQUATELY CONTROLLED [None]
  - ARTHRALGIA [None]
